FAERS Safety Report 8068758-0 (Version None)
Quarter: 2012Q1

REPORT INFORMATION
  Report Type: 
  Country: None (occurrence: None)
  Receive Date: 20120124
  Receipt Date: 20111227
  Transmission Date: 20120608
  Serious: No
  Sender: FDA-Public Use
  Company Number: US-AMGEN-USASP2011055439

PATIENT
  Age: 58 Year
  Sex: Female
  Weight: 52.154 kg

DRUGS (4)
  1. PROLIA [Suspect]
     Indication: OSTEOPOROSIS POSTMENOPAUSAL
     Dosage: UNK UNK, Q6MO
     Dates: start: 20110926
  2. SOMA [Concomitant]
  3. TOPAMAX [Concomitant]
  4. KLONOPIN [Concomitant]

REACTIONS (11)
  - PAIN IN EXTREMITY [None]
  - FATIGUE [None]
  - ANXIETY [None]
  - CERVICAL SPINAL STENOSIS [None]
  - MYALGIA [None]
  - MUSCLE SPASMS [None]
  - ASTHENIA [None]
  - INSOMNIA [None]
  - MUSCULOSKELETAL PAIN [None]
  - NECK PAIN [None]
  - BACK PAIN [None]
